FAERS Safety Report 9203345 (Version 2)
Quarter: 2013Q2

REPORT INFORMATION
  Report Type: Spontaneous
  Country: RU (occurrence: None)
  Receive Date: 20130328
  Receipt Date: 20130409
  Transmission Date: 20140414
  Serious: Yes (Other)
  Sender: FDA-Public Use
  Company Number: MPS1-1000969

PATIENT
  Age: 34 Year
  Sex: Female

DRUGS (2)
  1. ALDURAZYME (LARONIDASE) CONCENTRATE FOR SOLUTION FOR INFUSION [Suspect]
     Indication: MUCOPOLYSACCHARIDOSIS I
     Dosage: 4500 U, QW, INTRAVENOUS
     Dates: start: 20090210, end: 201103
  2. LORATIDINE [Concomitant]

REACTIONS (7)
  - Haemorrhage in pregnancy [None]
  - Caesarean section [None]
  - Premature separation of placenta [None]
  - Maternal exposure timing unspecified [None]
  - Pregnancy [None]
  - Premature delivery [None]
  - Breast feeding [None]
